FAERS Safety Report 9028298 (Version 1)
Quarter: 2013Q1

REPORT INFORMATION
  Report Type: Spontaneous
  Country: US (occurrence: None)
  Receive Date: 20130115
  Receipt Date: 20130115
  Transmission Date: 20140127
  Serious: Yes (Life-Threatening)
  Sender: FDA-Public Use
  Company Number: None

PATIENT
  Age: 68 Year
  Sex: Female
  Weight: 68.04 kg

DRUGS (2)
  1. DOXYCYCLINE [Suspect]
     Route: 048
     Dates: start: 20121207, end: 20121211
  2. METRONIDAZOLE [Suspect]
     Route: 048
     Dates: start: 20121207, end: 20121211

REACTIONS (4)
  - Leukocytoclastic vasculitis [None]
  - Pyrexia [None]
  - Hepatitis [None]
  - Drug reaction with eosinophilia and systemic symptoms [None]
